FAERS Safety Report 23983235 (Version 2)
Quarter: 2024Q2

REPORT INFORMATION
  Report Type: Spontaneous
  Country: US (occurrence: US)
  Receive Date: 20240617
  Receipt Date: 20240625
  Transmission Date: 20240716
  Serious: No
  Sender: FDA-Public Use
  Company Number: US-TAIHOP-2024-005602

PATIENT
  Sex: Male

DRUGS (2)
  1. LYTGOBI [Suspect]
     Active Substance: FUTIBATINIB
     Indication: Cholangiocarcinoma
     Dosage: FREQUENCY UNKNOWN
     Route: 048
     Dates: start: 20240319
  2. LYTGOBI [Suspect]
     Active Substance: FUTIBATINIB
     Dosage: FREQUENCY UNKNOWN
     Route: 048

REACTIONS (1)
  - Hypercalcaemia [Recovering/Resolving]
